FAERS Safety Report 20157763 (Version 1)
Quarter: 2021Q4

REPORT INFORMATION
  Report Type: Spontaneous
  Country: US (occurrence: US)
  Receive Date: 20211207
  Receipt Date: 20211207
  Transmission Date: 20220303
  Serious: No
  Sender: FDA-Public Use
  Company Number: US-PFIZER INC-202101540686

PATIENT
  Age: 65 Year

DRUGS (1)
  1. TOVIAZ [Suspect]
     Active Substance: FESOTERODINE FUMARATE
     Indication: Bladder disorder
     Dosage: UNK

REACTIONS (5)
  - Blood pressure abnormal [Unknown]
  - Thyroid disorder [Unknown]
  - COVID-19 [Unknown]
  - Pain [Unknown]
  - Drug ineffective [Unknown]
